FAERS Safety Report 10330747 (Version 1)
Quarter: 2014Q3

REPORT INFORMATION
  Report Type: Spontaneous
  Country: US (occurrence: None)
  Receive Date: 20140718
  Receipt Date: 20140718
  Transmission Date: 20150326
  Serious: No
  Sender: FDA-Public Use
  Company Number: None

PATIENT
  Age: 41 Year
  Sex: Female

DRUGS (1)
  1. PREMARIN [Suspect]
     Active Substance: ESTROGENS, CONJUGATED
     Indication: HORMONE REPLACEMENT THERAPY
     Dosage: 1 TABLET, ONCE DAILY, TAKEN BY MOUTH
     Route: 048
     Dates: start: 20140529, end: 20140609

REACTIONS (8)
  - Pain in extremity [None]
  - Skin ulcer [None]
  - Fatigue [None]
  - Pruritus [None]
  - Skin disorder [None]
  - Peripheral swelling [None]
  - Peripheral coldness [None]
  - Antinuclear antibody positive [None]

NARRATIVE: CASE EVENT DATE: 20140601
